FAERS Safety Report 24458806 (Version 1)
Quarter: 2024Q4

REPORT INFORMATION
  Report Type: Spontaneous
  Country: US (occurrence: US)
  Receive Date: 20241018
  Receipt Date: 20241018
  Transmission Date: 20250115
  Serious: No
  Sender: ROCHE
  Company Number: US-ROCHE-3524754

PATIENT
  Sex: Female

DRUGS (2)
  1. RITUXAN [Suspect]
     Active Substance: RITUXIMAB
     Indication: Autoimmune haemolytic anaemia
     Dosage: 4 INFUSIONS PER YEAR
     Route: 041
     Dates: start: 2006, end: 2016
  2. FOLIC ACID [Concomitant]
     Active Substance: FOLIC ACID
     Dosage: 1MG PILL X 2 DAILY TO EQUAL 2MG
     Route: 048
     Dates: start: 2000

REACTIONS (2)
  - Off label use [Unknown]
  - No adverse event [Unknown]

NARRATIVE: CASE EVENT DATE: 20060101
